FAERS Safety Report 13687845 (Version 1)
Quarter: 2017Q2

REPORT INFORMATION
  Report Type: Report from Study
  Country: US (occurrence: US)
  Receive Date: 20170626
  Receipt Date: 20170626
  Transmission Date: 20170830
  Serious: Yes (Hospitalization)
  Sender: FDA-Public Use
  Company Number: US-ROCHE-1952235

PATIENT
  Age: 36 Year
  Sex: Male
  Weight: 57.1 kg

DRUGS (5)
  1. ZYRTEC [Concomitant]
     Active Substance: CETIRIZINE HYDROCHLORIDE
     Route: 048
  2. LENALIDOMIDE [Suspect]
     Active Substance: LENALIDOMIDE
     Indication: B-CELL LYMPHOMA
     Dosage: 20 MG (4 CAPSULES) FOR 21 DAYS
     Route: 048
     Dates: start: 20170511, end: 20170518
  3. FIBER [Concomitant]
     Active Substance: PSYLLIUM HUSK
     Route: 048
  4. DEXTRIN [Concomitant]
     Active Substance: ICODEXTRIN
  5. OBINUTUZUMAB [Suspect]
     Active Substance: OBINUTUZUMAB
     Indication: B-CELL LYMPHOMA
     Route: 042
     Dates: start: 20170511, end: 20170511

REACTIONS (3)
  - Disease progression [Unknown]
  - Pain in extremity [Recovered/Resolved]
  - Hypercalcaemia [Recovered/Resolved]

NARRATIVE: CASE EVENT DATE: 20170518
